FAERS Safety Report 12908002 (Version 1)
Quarter: 2016Q4

REPORT INFORMATION
  Report Type: Other
  Country: US (occurrence: US)
  Receive Date: 20161103
  Receipt Date: 20161103
  Transmission Date: 20170207
  Serious: Yes (Other)
  Sender: FDA-Public Use
  Company Number: US-COL_24888_2016

PATIENT
  Age: 69 Year
  Sex: Male

DRUGS (3)
  1. COLGATE CAVITY PROTECTION GREAT REGULAR FLAVOR [Suspect]
     Active Substance: SODIUM MONOFLUOROPHOSPHATE
     Dosage: NI/NI/
     Route: 048
     Dates: start: 20161023, end: 201610
  2. COLGATE CAVITY PROTECTION GREAT REGULAR FLAVOR [Suspect]
     Active Substance: SODIUM MONOFLUOROPHOSPHATE
     Dosage: 1/2 INCH/TWO TIMES A DAY/
     Route: 048
  3. COLGATE CAVITY PROTECTION GREAT REGULAR FLAVOR [Suspect]
     Active Substance: SODIUM MONOFLUOROPHOSPHATE
     Indication: DENTAL DISORDER PROPHYLAXIS
     Dosage: 3/8 INCH/TWO TIMES A DAY/
     Route: 048
     Dates: end: 2016

REACTIONS (5)
  - Oral discomfort [Recovered/Resolved]
  - Tooth extraction [None]
  - Throat cancer [Recovered/Resolved]
  - Burning sensation [Recovered/Resolved]
  - Stomatitis [Recovered/Resolved]

NARRATIVE: CASE EVENT DATE: 201512
